FAERS Safety Report 15651783 (Version 2)
Quarter: 2018Q4

REPORT INFORMATION
  Report Type: Report from Study
  Country: None (occurrence: CA)
  Receive Date: 20181123
  Receipt Date: 20181219
  Transmission Date: 20190205
  Serious: Yes (Hospitalization)
  Sender: FDA-Public Use
  Company Number: CA-ABBVIE-18K-028-2566230-00

PATIENT
  Age: 51 Year
  Sex: Male
  Weight: 81.6 kg

DRUGS (2)
  1. HUMIRA [Suspect]
     Active Substance: ADALIMUMAB
     Route: 058
     Dates: start: 20181119
  2. HUMIRA [Suspect]
     Active Substance: ADALIMUMAB
     Indication: CROHN^S DISEASE
     Route: 058
     Dates: start: 20180228, end: 20181103

REACTIONS (6)
  - Erythema [Not Recovered/Not Resolved]
  - Pain [Unknown]
  - Perineal cellulitis [Recovered/Resolved]
  - Fistula [Recovered/Resolved]
  - Anal fistula [Recovered/Resolved]
  - Induration [Unknown]

NARRATIVE: CASE EVENT DATE: 2018
